FAERS Safety Report 8256803-9 (Version None)
Quarter: 2012Q2

REPORT INFORMATION
  Report Type: 
  Country: None (occurrence: None)
  Receive Date: 20120403
  Receipt Date: 20120329
  Transmission Date: 20120825
  Serious: Yes (Death, Hospitalization)
  Sender: FDA-Public Use
  Company Number: PHHY2012BR027538

PATIENT
  Sex: Female

DRUGS (3)
  1. ALENIA [Suspect]
     Indication: PULMONARY FIBROSIS
  2. DAXTON [Concomitant]
     Indication: LUNG DISORDER
  3. ONBREZ [Suspect]
     Dosage: 150 UG, QD
     Dates: start: 20120307

REACTIONS (4)
  - PULMONARY FIBROSIS [None]
  - TUBERCULOSIS [None]
  - TOTAL LUNG CAPACITY DECREASED [None]
  - LUNG INFECTION [None]
